FAERS Safety Report 12306208 (Version 3)
Quarter: 2016Q3

REPORT INFORMATION
  Report Type: Spontaneous
  Country: US (occurrence: US)
  Receive Date: 20160426
  Receipt Date: 20160816
  Transmission Date: 20161109
  Serious: No
  Sender: FDA-Public Use
  Company Number: US-PFIZER INC-2015459886

PATIENT
  Age: 60 Year
  Sex: Male
  Weight: 115 kg

DRUGS (20)
  1. BELSOMRA [Concomitant]
     Active Substance: SUVOREXANT
     Dosage: ONE TABLET ONCE PER NIGHT WITHIN 30 MINUTES OF BEDTIME
     Route: 048
     Dates: start: 20151105
  2. VALIUM [Concomitant]
     Active Substance: DIAZEPAM
     Dosage: TAKE 1 TABLET EVERY DAY
     Route: 048
     Dates: start: 20151203
  3. MS CONTIN [Concomitant]
     Active Substance: MORPHINE SULFATE
     Indication: BACK PAIN
     Dosage: 30 MG, 2X/DAY OR EVERY 12 HOURS
     Dates: start: 2014
  4. MS CONTIN [Concomitant]
     Active Substance: MORPHINE SULFATE
     Indication: ARTHRALGIA
  5. JARDIANCE [Concomitant]
     Active Substance: EMPAGLIFLOZIN
     Indication: DIABETES MELLITUS
     Dosage: 1 TABLET EVERY DAY IN THE MORNING
     Route: 048
     Dates: start: 20151105
  6. LOVASTATIN. [Concomitant]
     Active Substance: LOVASTATIN
     Dosage: 1 TABLET EVERY DAY WITH THE EVENING MEAL
     Route: 048
     Dates: start: 20150629
  7. MORPHINE SULFATE. [Concomitant]
     Active Substance: MORPHINE SULFATE
     Dosage: TAKE 1 TABLET EVERY 12 HOURS
     Route: 048
     Dates: start: 20140819
  8. HYDROCHLOROTHIAZIDE. [Concomitant]
     Active Substance: HYDROCHLOROTHIAZIDE
     Indication: PERIPHERAL SWELLING
     Dosage: 12.5 MG, AS NEEDED, (EVERY DAY)
     Route: 048
     Dates: start: 20151105
  9. METOPROLOL SUCCINATE. [Concomitant]
     Active Substance: METOPROLOL SUCCINATE
     Dosage: TAKE 1 TABLET ONCE DAILY
     Route: 048
     Dates: start: 20150629
  10. LYRICA [Suspect]
     Active Substance: PREGABALIN
     Indication: TYPE 2 DIABETES MELLITUS
  11. LISINOPRIL. [Concomitant]
     Active Substance: LISINOPRIL
     Dosage: 1 TABLET EVERY DAY
     Route: 048
     Dates: start: 20150629
  12. METFORMIN [Concomitant]
     Active Substance: METFORMIN HYDROCHLORIDE
     Dosage: TAKE 1 TABLET 2 TIMES EVERY DAY WITH MORNING AND EVENING MEALS
     Route: 048
     Dates: start: 20150904
  13. LYRICA [Suspect]
     Active Substance: PREGABALIN
     Indication: DIABETIC NEUROPATHY
  14. XARELTO [Concomitant]
     Active Substance: RIVAROXABAN
     Dosage: TAKE 1 TABLET NIGHTLY WITH EVENING MEAL
     Route: 048
     Dates: start: 20150630
  15. MORPHINE [Concomitant]
     Active Substance: MORPHINE
     Dosage: 15 MG, AS NEEDED (TWICE A DAY)
  16. GLIMEPIRIDE. [Concomitant]
     Active Substance: GLIMEPIRIDE
     Dosage: TAKE 1 TABLET 2 TIMES EVERY DAY
     Route: 048
     Dates: start: 20150910
  17. LEXAPRO [Concomitant]
     Active Substance: ESCITALOPRAM OXALATE
     Dosage: 1 TABLET EVERY DAY
     Route: 048
     Dates: start: 20150609
  18. SENNOSIDES-DOCUSATE SODIUM [Concomitant]
     Active Substance: DOCUSATE SODIUM\SENNOSIDES
     Indication: CONSTIPATION
     Dosage: 2 DF, AS NEEDED, (2 TIMES DAILY)
     Route: 048
     Dates: start: 20140922
  19. LYRICA [Suspect]
     Active Substance: PREGABALIN
     Indication: NEUROPATHY PERIPHERAL
     Dosage: TAKE 1 CAPSULE 2 TIMES EVERY DAY
     Route: 048
     Dates: start: 20151019
  20. TIZANIDINE. [Concomitant]
     Active Substance: TIZANIDINE
     Dosage: TAKE 1 TABLET EVERY 8 HOURS AS NEEDED NOT TO EXCEED 3 DOSES IN 24 HOURS
     Route: 048
     Dates: start: 20140819

REACTIONS (2)
  - Feeling abnormal [Unknown]
  - Headache [Recovered/Resolved]
